FAERS Safety Report 8528190 (Version 2)
Quarter: 2012Q4

REPORT INFORMATION
  Report Type: 
  Country: GB (occurrence: GB)
  Receive Date: 20120424
  Receipt Date: 20121010
  Transmission Date: 20130627
  Serious: Yes (Hospitalization, Other)
  Sender: FDA-Public Use
  Company Number: GB-ELI_LILLY_AND_COMPANY-GB201204003679

PATIENT
  Sex: Female

DRUGS (1)
  1. ZYPREXA [Suspect]
     Dosage: 15 mg, qd
     Route: 048

REACTIONS (3)
  - Hospitalisation [Unknown]
  - Dysphagia [Unknown]
  - Drug withdrawal syndrome [Unknown]
